FAERS Safety Report 6742788-0 (Version None)
Quarter: 2010Q2

REPORT INFORMATION
  Report Type: 
  Country: None (occurrence: None)
  Receive Date: 20100525
  Receipt Date: 20100510
  Transmission Date: 20101027
  Serious: Yes (Death)
  Sender: FDA-Public Use
  Company Number: AUR-APL-2010-01276

PATIENT
  Age: 47 Year
  Sex: Female

DRUGS (10)
  1. FLUOXETINE [Suspect]
  2. SERTRALINE HCL [Suspect]
  3. OXYMORPHONE [Suspect]
  4. METHAMPHETAMINE HYDROCHLORIDE [Suspect]
  5. TRAZODONE HCL [Suspect]
  6. ETHANOL [Suspect]
  7. BUPROPION HCL [Suspect]
  8. AMPHETAMINE SULFATE [Suspect]
  9. TRIMETHOPRIM [Suspect]
  10. CHLORPHENIRAMINE MALEATE [Suspect]

REACTIONS (6)
  - ACCIDENTAL DEATH [None]
  - ALCOHOL POISONING [None]
  - CONTUSION [None]
  - DRUG TOXICITY [None]
  - EXCORIATION [None]
  - PULMONARY CONGESTION [None]
